FAERS Safety Report 20576141 (Version 1)
Quarter: 2022Q1

REPORT INFORMATION
  Report Type: Spontaneous
  Country: GR (occurrence: GR)
  Receive Date: 20220310
  Receipt Date: 20220310
  Transmission Date: 20220423
  Serious: Yes (Life-Threatening)
  Sender: FDA-Public Use
  Company Number: None

PATIENT
  Age: 70 Year
  Sex: Female
  Weight: 65 kg

DRUGS (11)
  1. MOLNUPIRAVIR [Suspect]
     Active Substance: MOLNUPIRAVIR
     Indication: COVID-19 treatment
     Dosage: 800 MG TWICE PER DAY
     Route: 048
     Dates: start: 20220218
  2. EZETIMIBE [Concomitant]
     Active Substance: EZETIMIBE
     Route: 048
  3. LASIX [Concomitant]
     Active Substance: FUROSEMIDE
     Route: 048
  4. OPSUMIT [Concomitant]
     Active Substance: MACITENTAN
     Route: 048
  5. INSPRA [Concomitant]
     Active Substance: EPLERENONE
     Route: 048
  6. ASPIRIN [Concomitant]
     Active Substance: ASPIRIN
  7. LIPITOR [Concomitant]
     Active Substance: ATORVASTATIN CALCIUM
     Route: 048
  8. METOPROLOL SUCCINATE [Concomitant]
     Active Substance: METOPROLOL SUCCINATE
     Route: 048
  9. MABTHERA [Concomitant]
     Active Substance: RITUXIMAB
     Dosage: UNK
     Route: 048
     Dates: start: 20211017, end: 20211017
  10. EFFIENT [Concomitant]
     Active Substance: PRASUGREL HYDROCHLORIDE
     Route: 048
  11. ALLOPURINOL [Concomitant]
     Active Substance: ALLOPURINOL
     Route: 048

REACTIONS (2)
  - Endotracheal intubation [Not Recovered/Not Resolved]
  - Hypercapnic coma [Not Recovered/Not Resolved]

NARRATIVE: CASE EVENT DATE: 20220223
